FAERS Safety Report 9521440 (Version 3)
Quarter: 2013Q3

REPORT INFORMATION
  Report Type: Spontaneous
  Country: US (occurrence: None)
  Receive Date: 20130909
  Receipt Date: 20130927
  Transmission Date: 20140515
  Serious: Yes (Other)
  Sender: FDA-Public Use
  Company Number: 2013037779

PATIENT
  Sex: Female

DRUGS (1)
  1. CARIMUNE [Suspect]
     Route: 042

REACTIONS (4)
  - Meningitis aseptic [None]
  - Alopecia [None]
  - Heart rate increased [None]
  - Convulsion [None]
